FAERS Safety Report 9356246 (Version 1)
Quarter: 2013Q2

REPORT INFORMATION
  Report Type: Spontaneous
  Country: DE (occurrence: DE)
  Receive Date: 20130619
  Receipt Date: 20130619
  Transmission Date: 20140414
  Serious: Yes (Hospitalization)
  Sender: FDA-Public Use
  Company Number: DE-GLAXOSMITHKLINE-D0080168A

PATIENT
  Age: 70 Year
  Sex: Male

DRUGS (5)
  1. REVOLADE [Suspect]
     Dosage: 25MG PER DAY
     Route: 065
  2. ASS [Concomitant]
     Dosage: 100MG PER DAY
     Route: 065
  3. ENALAPRIL + HYDROCHLOROTHIAZIDE [Concomitant]
     Dosage: 35MG PER DAY
     Route: 065
  4. METOPROLOL SUCCINATE [Concomitant]
     Dosage: 95MG PER DAY
     Route: 065
  5. SIMVASTATINE [Concomitant]
     Dosage: 20MG PER DAY
     Route: 065

REACTIONS (1)
  - Pemphigoid [Recovering/Resolving]
